FAERS Safety Report 11821483 (Version 1)
Quarter: 2015Q4

REPORT INFORMATION
  Report Type: Not Available
  Country: CA (occurrence: CA)
  Receive Date: 20151210
  Receipt Date: 20151210
  Transmission Date: 20160305
  Serious: Yes (Other)
  Sender: FDA-Public Use
  Company Number: CA-BEH-2015056455

PATIENT
  Age: 58 Year
  Sex: Female

DRUGS (1)
  1. ALBUREX [Suspect]
     Active Substance: ALBUMIN (HUMAN)
     Indication: PERITONITIS BACTERIAL
     Route: 042

REACTIONS (3)
  - Coombs direct test positive [Recovered/Resolved]
  - Oxygen saturation decreased [Recovered/Resolved]
  - Transfusion-associated dyspnoea [Recovered/Resolved]
